FAERS Safety Report 9109821 (Version 1)
Quarter: 2013Q1

REPORT INFORMATION
  Report Type: Spontaneous
  Country: US (occurrence: US)
  Receive Date: 20130222
  Receipt Date: 20130222
  Transmission Date: 20140127
  Serious: No
  Sender: FDA-Public Use
  Company Number: US-PFIZER INC-2013064250

PATIENT
  Age: 61 Year
  Sex: Female
  Weight: 101.13 kg

DRUGS (3)
  1. DICLOFENAC SODIUM (+) MISOPROSTOL [Suspect]
     Indication: PAIN IN EXTREMITY
     Dosage: 200 UG/75 MG, 2X/DAY
     Route: 048
     Dates: start: 201301
  2. SYNTHROID [Concomitant]
     Indication: HYPERTHYROIDISM
     Dosage: UNK
  3. LOSARTAN [Concomitant]
     Indication: HYPERTENSION
     Dosage: UNK

REACTIONS (2)
  - Gastric disorder [Not Recovered/Not Resolved]
  - Influenza like illness [Not Recovered/Not Resolved]
